FAERS Safety Report 5697745-2 (Version None)
Quarter: 2008Q2

REPORT INFORMATION
  Report Type: 
  Country: None (occurrence: None)
  Receive Date: 20080408
  Receipt Date: 20080324
  Transmission Date: 20081010
  Serious: Yes (Other)
  Sender: FDA-Public Use
  Company Number: US-AVENTIS-200811926US

PATIENT
  Age: 63 Year
  Sex: Male

DRUGS (3)
  1. LANTUS [Suspect]
     Indication: TYPE 2 DIABETES MELLITUS
     Route: 058
  2. OPTICLIK (INSULIN INJECTION PEN) [Suspect]
     Indication: TYPE 2 DIABETES MELLITUS
  3. APIDRA [Concomitant]
     Dosage: DOSE: UNK
     Route: 058

REACTIONS (1)
  - WEIGHT INCREASED [None]
